FAERS Safety Report 9911516 (Version 2)
Quarter: 2014Q1

REPORT INFORMATION
  Report Type: Spontaneous
  Country: IT (occurrence: IT)
  Receive Date: 20140219
  Receipt Date: 20140224
  Transmission Date: 20141002
  Serious: Yes (Hospitalization)
  Sender: FDA-Public Use
  Company Number: PHHY2014IT016105

PATIENT
  Age: 47 Year
  Sex: Male

DRUGS (4)
  1. CEFUROXIME AXETIL [Suspect]
     Indication: DRUG ABUSE
     Dosage: 3 G, ONCE/SINGLE
     Route: 048
     Dates: start: 20140123, end: 20140123
  2. DEPAKIN [Suspect]
     Indication: DRUG ABUSE
     Dosage: 30 DF, ONCE/SINGLE
     Route: 048
     Dates: start: 20140123, end: 20140123
  3. LYRICA [Suspect]
     Indication: DRUG ABUSE
     Dosage: 34 DF, ONCE/SINGLE
     Route: 048
     Dates: start: 20140123, end: 20140123
  4. NOZINAN [Suspect]
     Dosage: 20 DF, ONCE/SINGLE
     Route: 048
     Dates: start: 20140123, end: 20140123

REACTIONS (2)
  - Drug abuse [Recovered/Resolved]
  - Sopor [Recovered/Resolved]
